FAERS Safety Report 9731132 (Version 1)
Quarter: 2013Q4

REPORT INFORMATION
  Report Type: Report from Study
  Country: US (occurrence: US)
  Receive Date: 20131205
  Receipt Date: 20131205
  Transmission Date: 20140711
  Serious: Yes (Death)
  Sender: FDA-Public Use
  Company Number: US-ROCHE-1308842

PATIENT
  Age: 64 Year
  Sex: Female

DRUGS (5)
  1. PERJETA [Suspect]
     Indication: BREAST CANCER METASTATIC
     Route: 041
     Dates: start: 20130718
  2. PERJETA [Suspect]
     Route: 041
     Dates: start: 20130815
  3. HERCEPTIN [Suspect]
     Indication: BREAST CANCER METASTATIC
     Route: 041
     Dates: start: 20130718
  4. HERCEPTIN [Suspect]
     Route: 041
     Dates: start: 20130815
  5. ZOMETA [Concomitant]

REACTIONS (3)
  - Death [Fatal]
  - Feeling abnormal [Unknown]
  - No therapeutic response [Unknown]
